FAERS Safety Report 8454665-8 (Version None)
Quarter: 2012Q2

REPORT INFORMATION
  Report Type: 
  Country: None (occurrence: None)
  Receive Date: 20120615
  Receipt Date: 20120615
  Transmission Date: 20120825
  Serious: Yes (Disabling)
  Sender: FDA-Public Use
  Company Number: None

PATIENT
  Age: 10 Year
  Sex: Male

DRUGS (1)
  1. SINGULAIR [Suspect]
     Indication: ASTHMA
     Dosage: 10MG 1
     Dates: start: 20031001, end: 20040701

REACTIONS (2)
  - INSOMNIA [None]
  - TREMOR [None]
